FAERS Safety Report 16202478 (Version 1)
Quarter: 2019Q2

REPORT INFORMATION
  Report Type: Spontaneous
  Country: US (occurrence: US)
  Receive Date: 20190415
  Receipt Date: 20190415
  Transmission Date: 20190711
  Serious: No
  Sender: FDA-Public Use
  Company Number: None

PATIENT
  Age: 25 Year
  Sex: Female
  Weight: 57.15 kg

DRUGS (1)
  1. QUEEN BEE NATURALS , CBD QUEEN [Suspect]
     Active Substance: CANNABIDIOL\HERBALS
     Indication: ACNE
     Dosage: ?          QUANTITY:1 INHALATION(S);OTHER FREQUENCY:ONCE A WEEK;?
     Route: 061
     Dates: start: 20190304, end: 20190412

REACTIONS (1)
  - Chemical burn of skin [None]

NARRATIVE: CASE EVENT DATE: 20190412
